FAERS Safety Report 11284135 (Version 1)
Quarter: 2015Q3

REPORT INFORMATION
  Report Type: Spontaneous
  Country: US (occurrence: US)
  Receive Date: 20150720
  Receipt Date: 20150720
  Transmission Date: 20151125
  Serious: No
  Sender: FDA-Public Use
  Company Number: US-BAUSCH-BL-2015-012525

PATIENT
  Age: 80 Year
  Sex: Female

DRUGS (3)
  1. PREDNISOLONE ACETATE 1% [Suspect]
     Active Substance: PREDNISOLONE ACETATE
     Indication: CATARACT OPERATION
     Dosage: 4 OR 6 TIMES A DAY IN LEFT EYE
     Route: 047
     Dates: start: 20150415
  2. POLYMYXIN B. [Suspect]
     Active Substance: POLYMYXIN B
     Indication: CATARACT OPERATION
     Dosage: 4 OR 6 TIMES A DAY IN LEFT EYE
     Route: 047
     Dates: start: 20150415
  3. PROLENSA [Suspect]
     Active Substance: BROMFENAC SODIUM
     Indication: CATARACT OPERATION
     Dosage: IN LEFT EYE
     Route: 047
     Dates: start: 201504

REACTIONS (2)
  - Balance disorder [Not Recovered/Not Resolved]
  - Herpes zoster [Not Recovered/Not Resolved]

NARRATIVE: CASE EVENT DATE: 201504
